FAERS Safety Report 6171790-5 (Version None)
Quarter: 2009Q2

REPORT INFORMATION
  Report Type: 
  Country: None (occurrence: None)
  Receive Date: 20090429
  Receipt Date: 20090420
  Transmission Date: 20091009
  Serious: Yes (Disabling, Other)
  Sender: FDA-Public Use
  Company Number: US-ROCHE-589807

PATIENT
  Sex: Female
  Weight: 51.7 kg

DRUGS (8)
  1. BONIVA [Suspect]
     Indication: OSTEOPOROSIS
     Dosage: SECOND DOSE IN MARCH 2008
     Route: 042
     Dates: start: 20070925, end: 20080625
  2. SINGULAIR [Concomitant]
     Dosage: START DATE: BEFORE 2005
     Route: 048
     Dates: start: 20050101
  3. VYTORIN [Concomitant]
     Dosage: STRENGTH: 10-20. DOSE REPORTED AS 10/20 GRAM, FREQUENCY: DAILY. START DATE BEFORE: 2005
     Route: 048
     Dates: start: 20050101, end: 20080602
  4. VYTORIN [Concomitant]
     Dosage: NO CHANGE IN DOSE. DOSE 10/20 GRAM. FREQUENCY: DAILY
     Route: 048
  5. INSULIN [Concomitant]
     Dosage: FORM: PUMP
     Route: 048
  6. NOVOXYN [Concomitant]
     Dosage: ROUTE: PUMP. START DATE: BEFORE 2005
     Route: 050
  7. CA++ [Concomitant]
     Indication: OSTEOPOROSIS
     Dosage: DAILY
     Route: 048
  8. ASPIRIN [Concomitant]
     Indication: PROPHYLAXIS
     Route: 048

REACTIONS (5)
  - ARTHRALGIA [None]
  - HIP ARTHROPLASTY [None]
  - MUSCLE STRAIN [None]
  - MUSCULOSKELETAL PAIN [None]
  - PAIN IN EXTREMITY [None]
